FAERS Safety Report 8396389-1 (Version None)
Quarter: 2012Q2

REPORT INFORMATION
  Report Type: 
  Country: None (occurrence: None)
  Receive Date: 20120530
  Receipt Date: 20120522
  Transmission Date: 20120825
  Serious: Yes (Hospitalization, Other)
  Sender: FDA-Public Use
  Company Number: US-MERCK-1012USA03391

PATIENT
  Age: 63 Year
  Sex: Female

DRUGS (1)
  1. FOSAMAX [Suspect]
     Route: 048
     Dates: start: 20010101, end: 20100101

REACTIONS (5)
  - FEMUR FRACTURE [None]
  - CARDIAC DISORDER [None]
  - WOUND INFECTION [None]
  - IMPAIRED HEALING [None]
  - ADVERSE EVENT [None]
